FAERS Safety Report 4666862-8 (Version None)
Quarter: 2005Q2

REPORT INFORMATION
  Report Type: 
  Country: None (occurrence: None)
  Receive Date: 20050518
  Receipt Date: 20041123
  Transmission Date: 20051028
  Serious: Yes (Other)
  Sender: FDA-Public Use
  Company Number: 2004240267US

PATIENT
  Age: 15 Year
  Sex: Female

DRUGS (2)
  1. DEPO-PROVERA [Suspect]
     Indication: CONTRACEPTION
     Dosage: 150 MG ( 150 MG ,1ST INJ ) IM,  150 MG ( 150 MG LAST INJ ) IM
     Route: 030
     Dates: start: 20030625, end: 20030625
  2. DEPO-PROVERA [Suspect]
     Indication: CONTRACEPTION
     Dosage: 150 MG ( 150 MG ,1ST INJ ) IM,  150 MG ( 150 MG LAST INJ ) IM
     Route: 030
     Dates: start: 20030922, end: 20030922

REACTIONS (1)
  - UNINTENDED PREGNANCY [None]
